FAERS Safety Report 7576324-6 (Version None)
Quarter: 2011Q2

REPORT INFORMATION
  Report Type: 
  Country: None (occurrence: None)
  Receive Date: 20110628
  Receipt Date: 20110418
  Transmission Date: 20111010
  Serious: Yes (Hospitalization, Other)
  Sender: FDA-Public Use
  Company Number: US-BAYER-2010-008192

PATIENT
  Age: 32 Year
  Sex: Female

DRUGS (10)
  1. NAPROXEN (ALEVE) [Concomitant]
     Indication: PREMEDICATION
  2. AMBIEN [Concomitant]
  3. OXYBUTYNIN [Concomitant]
  4. INTERFERON BETA-1B [Suspect]
     Indication: MULTIPLE SCLEROSIS
     Dosage: 8 MIU, QOD
     Route: 058
     Dates: start: 20100724, end: 20110106
  5. ARICEPT [Suspect]
     Dosage: 10 MG, UNK
     Dates: start: 20101101
  6. CARDIAC MEDICATION [Concomitant]
     Dosage: UNK
     Dates: end: 20101129
  7. INTERFERON BETA-1B [Suspect]
     Indication: RELAPSING-REMITTING MULTIPLE SCLEROSIS
  8. NAMENDA [Concomitant]
  9. CELEXA [Concomitant]
  10. PROVIGIL [Concomitant]

REACTIONS (5)
  - HYPOTENSION [None]
  - COGNITIVE DISORDER [None]
  - SUICIDE ATTEMPT [None]
  - DEPRESSION [None]
  - IMPAIRED WORK ABILITY [None]
